FAERS Safety Report 13709104 (Version 3)
Quarter: 2017Q3

REPORT INFORMATION
  Report Type: Spontaneous
  Country: FR (occurrence: FR)
  Receive Date: 20170702
  Receipt Date: 20170802
  Transmission Date: 20171127
  Serious: Yes (Hospitalization, Other)
  Sender: FDA-Public Use
  Company Number: PHHY2017FR092176

PATIENT
  Sex: Male

DRUGS (7)
  1. LYRICA [Suspect]
     Active Substance: PREGABALIN
     Dosage: 25 MG, 1 TABLET IN THE EVENING
     Route: 065
  2. TRAMADOL SANDOZ [Suspect]
     Active Substance: TRAMADOL
     Indication: PRODUCT USED FOR UNKNOWN INDICATION
     Dosage: 1 DF, BID 1 TABLET IN MORNING AND 1 TABLET IN EVENING UNTIL 15 TO 20 DAYS
     Route: 048
  3. TRAMADOL SANDOZ [Suspect]
     Active Substance: TRAMADOL
     Dosage: 50 MG, I.E. 12.5 MG EACH EVENING
     Route: 048
  4. LYRICA [Suspect]
     Active Substance: PREGABALIN
     Indication: PRODUCT USED FOR UNKNOWN INDICATION
     Dosage: 1 DF, BID 1 TABLET IN MORNING AND 1 TABLET IN EVENING (25 MG) UNTIL 15 TO 20 DAYS
     Route: 065
  5. LYRICA [Suspect]
     Active Substance: PREGABALIN
     Dosage: 25 MG, I.E. 12.5 MG EVERY EVENING
     Route: 065
  6. TRAMADOL SANDOZ [Suspect]
     Active Substance: TRAMADOL
     Dosage: 50 MG, I.E. 25 MG EACH EVENING
     Route: 048
  7. ASPIRIN. [Concomitant]
     Active Substance: ASPIRIN
     Indication: PRODUCT USED FOR UNKNOWN INDICATION
     Dosage: 1 DF, UNK
     Route: 065

REACTIONS (10)
  - Withdrawal syndrome [Recovering/Resolving]
  - Feeling abnormal [Recovering/Resolving]
  - Abdominal distension [Recovering/Resolving]
  - Restlessness [Recovering/Resolving]
  - Colitis [Recovering/Resolving]
  - Insomnia [Recovering/Resolving]
  - Suicidal ideation [Recovering/Resolving]
  - Vision blurred [Recovering/Resolving]
  - Peripheral swelling [Recovering/Resolving]
  - Fatigue [Recovering/Resolving]

NARRATIVE: CASE EVENT DATE: 2017
